FAERS Safety Report 6362180-0 (Version None)
Quarter: 2009Q3

REPORT INFORMATION
  Report Type: 
  Country: None (occurrence: None)
  Receive Date: 20090918
  Receipt Date: 20090910
  Transmission Date: 20100115
  Serious: Yes (Hospitalization)
  Sender: FDA-Public Use
  Company Number: US-B.I. PHARMACEUTICALS,INC./RIDGEFIELD-2005-BP-20133BP

PATIENT
  Sex: Male
  Weight: 89.36 kg

DRUGS (2)
  1. MIRAPEX [Suspect]
     Indication: PARKINSON'S DISEASE
     Dates: start: 20020101, end: 20070510
  2. MIRAPEX [Suspect]
     Indication: TREMOR

REACTIONS (10)
  - ANXIETY [None]
  - DEPRESSION [None]
  - HYPERSEXUALITY [None]
  - MANIA [None]
  - OBSESSIVE-COMPULSIVE DISORDER [None]
  - PATHOLOGICAL GAMBLING [None]
  - ROAD TRAFFIC ACCIDENT [None]
  - STRESS [None]
  - SUDDEN ONSET OF SLEEP [None]
  - THINKING ABNORMAL [None]
